FAERS Safety Report 16882676 (Version 4)
Quarter: 2022Q1

REPORT INFORMATION
  Report Type: Spontaneous
  Country: DE (occurrence: DE)
  Receive Date: 20191003
  Receipt Date: 20220106
  Transmission Date: 20220424
  Serious: Yes (Other)
  Sender: FDA-Public Use
  Company Number: ALC2019DE000834

PATIENT

DRUGS (27)
  1. CYCLOPENTOLATE HYDROCHLORIDE [Suspect]
     Active Substance: CYCLOPENTOLATE HYDROCHLORIDE
     Indication: Staphylococcal infection
     Dosage: UNK
     Route: 050
  2. CYCLOPENTOLATE HYDROCHLORIDE [Suspect]
     Active Substance: CYCLOPENTOLATE HYDROCHLORIDE
     Indication: Ulcerative keratitis
     Dosage: UNK
     Route: 061
  3. CYCLOPENTOLATE HYDROCHLORIDE [Suspect]
     Active Substance: CYCLOPENTOLATE HYDROCHLORIDE
     Indication: Endophthalmitis
     Dosage: UNK
     Route: 061
  4. TIMOLOL [Suspect]
     Active Substance: TIMOLOL
     Indication: Ulcerative keratitis
     Dosage: UNK
     Route: 061
  5. TIMOLOL [Suspect]
     Active Substance: TIMOLOL
     Indication: Endophthalmitis
     Dosage: UNK
     Route: 061
  6. TIMOLOL [Suspect]
     Active Substance: TIMOLOL
     Indication: Staphylococcal infection
     Dosage: UNK
     Route: 050
  7. DEXAMETHASONE [Suspect]
     Active Substance: DEXAMETHASONE
     Indication: Ulcerative keratitis
     Dosage: UNK
     Route: 050
  8. DEXAMETHASONE [Suspect]
     Active Substance: DEXAMETHASONE
     Indication: Endophthalmitis
     Dosage: UNK
     Route: 061
  9. DEXAMETHASONE [Suspect]
     Active Substance: DEXAMETHASONE
     Indication: Staphylococcal infection
     Dosage: UNK
     Route: 061
  10. MOXIFLOXACIN [Suspect]
     Active Substance: MOXIFLOXACIN
     Indication: Staphylococcal infection
     Dosage: UNK
     Route: 048
  11. MOXIFLOXACIN [Suspect]
     Active Substance: MOXIFLOXACIN
     Indication: Ulcerative keratitis
     Dosage: UNK
     Route: 065
  12. MOXIFLOXACIN [Suspect]
     Active Substance: MOXIFLOXACIN
     Indication: Endophthalmitis
     Dosage: UNK
     Route: 065
  13. GRAMICIDIN\NEOMYCIN\POLYMYXIN B SULFATE [Suspect]
     Active Substance: GRAMICIDIN\NEOMYCIN\POLYMYXIN B SULFATE
     Indication: Ulcerative keratitis
     Dosage: UNK
     Route: 050
  14. GRAMICIDIN\NEOMYCIN\POLYMYXIN B SULFATE [Suspect]
     Active Substance: GRAMICIDIN\NEOMYCIN\POLYMYXIN B SULFATE
     Indication: Staphylococcal infection
     Dosage: UNK
     Route: 061
  15. GRAMICIDIN\NEOMYCIN\POLYMYXIN B SULFATE [Suspect]
     Active Substance: GRAMICIDIN\NEOMYCIN\POLYMYXIN B SULFATE
     Indication: Endophthalmitis
     Dosage: UNK
     Route: 061
  16. CEFTAZIDIME [Suspect]
     Active Substance: CEFTAZIDIME
     Indication: Ulcerative keratitis
     Dosage: UNK
     Route: 050
  17. CEFTAZIDIME [Suspect]
     Active Substance: CEFTAZIDIME
     Indication: Endophthalmitis
     Dosage: UNK
     Route: 031
  18. CEFTAZIDIME [Suspect]
     Active Substance: CEFTAZIDIME
     Indication: Staphylococcal infection
     Dosage: UNK
     Route: 031
  19. MINOCYCLINE [Suspect]
     Active Substance: MINOCYCLINE HYDROCHLORIDE
     Indication: Staphylococcal infection
     Dosage: UNK
     Route: 048
  20. MINOCYCLINE [Suspect]
     Active Substance: MINOCYCLINE HYDROCHLORIDE
     Indication: Ulcerative keratitis
     Dosage: UNK
     Route: 065
  21. MINOCYCLINE [Suspect]
     Active Substance: MINOCYCLINE HYDROCHLORIDE
     Indication: Endophthalmitis
     Dosage: UNK
     Route: 065
  22. LEVOFLOXACIN [Suspect]
     Active Substance: LEVOFLOXACIN
     Indication: Endophthalmitis
     Dosage: UNK
     Route: 061
  23. LEVOFLOXACIN [Suspect]
     Active Substance: LEVOFLOXACIN
     Indication: Ulcerative keratitis
     Dosage: UNK
     Route: 061
  24. LEVOFLOXACIN [Suspect]
     Active Substance: LEVOFLOXACIN
     Indication: Staphylococcal infection
     Dosage: UNK
     Route: 050
  25. VANCOMYCIN [Suspect]
     Active Substance: VANCOMYCIN
     Indication: Staphylococcal infection
     Dosage: UNK
     Route: 031
  26. VANCOMYCIN [Suspect]
     Active Substance: VANCOMYCIN
     Indication: Endophthalmitis
     Dosage: UNK
     Route: 031
  27. VANCOMYCIN [Suspect]
     Active Substance: VANCOMYCIN
     Indication: Ulcerative keratitis
     Dosage: UNK
     Route: 050

REACTIONS (1)
  - Drug ineffective [Unknown]
